FAERS Safety Report 18824088 (Version 1)
Quarter: 2021Q1

REPORT INFORMATION
  Report Type: Report from Study
  Country: US (occurrence: US)
  Receive Date: 20210202
  Receipt Date: 20210202
  Transmission Date: 20210419
  Serious: Yes (Hospitalization)
  Sender: FDA-Public Use
  Company Number: US-JNJFOC-20210133590

PATIENT
  Sex: Female
  Weight: 113.6 kg

DRUGS (5)
  1. SILDENAFIL CITRATE. [Concomitant]
     Active Substance: SILDENAFIL CITRATE
  2. LETAIRIS [Concomitant]
     Active Substance: AMBRISENTAN
  3. SELEXIPAG [Suspect]
     Active Substance: SELEXIPAG
     Route: 048
  4. ELIQUIS [Concomitant]
     Active Substance: APIXABAN
  5. SELEXIPAG [Suspect]
     Active Substance: SELEXIPAG
     Indication: PULMONARY HYPERTENSION
     Route: 048

REACTIONS (9)
  - Muscle disorder [Not Recovered/Not Resolved]
  - Flushing [Unknown]
  - Headache [Unknown]
  - Pain in extremity [Unknown]
  - Intervertebral disc protrusion [Unknown]
  - Erythema [Unknown]
  - Gout [Not Recovered/Not Resolved]
  - Feeling abnormal [Recovering/Resolving]
  - Diarrhoea [Unknown]
